FAERS Safety Report 23407049 (Version 1)
Quarter: 2024Q1

REPORT INFORMATION
  Report Type: Report from Study
  Country: CA (occurrence: CA)
  Receive Date: 20240116
  Receipt Date: 20240116
  Transmission Date: 20240410
  Serious: Yes (Other)
  Sender: FDA-Public Use
  Company Number: CA-HLS-202303014

PATIENT
  Sex: Male

DRUGS (13)
  1. CLOZARIL [Suspect]
     Active Substance: CLOZAPINE
     Indication: Product used for unknown indication
     Dosage: 50MG BY MOUTH EVERY MORNING 300MG BY MOUTH EVERY BEDTIME
     Route: 048
     Dates: start: 20120203
  2. CARBAMAZEPINE [Concomitant]
     Active Substance: CARBAMAZEPINE
     Indication: Product used for unknown indication
     Dosage: 400MG BY MOUTH TWICE DAILY
     Route: 065
  3. DIVALPROEX SODIUM [Concomitant]
     Active Substance: DIVALPROEX SODIUM
     Indication: Product used for unknown indication
     Dosage: 500MG BY MOUTH TWICE DAILY
     Route: 065
  4. GABAPENTIN [Concomitant]
     Active Substance: GABAPENTIN
     Indication: Product used for unknown indication
     Dosage: 400 MG CAPSULE
     Route: 048
  5. ACETAMINOPHEN [Concomitant]
     Active Substance: ACETAMINOPHEN
     Indication: Pain
     Dosage: 650 MG ORAL AT BEDTIME AS NEEDED FOR: PAIN
     Route: 048
  6. chlorobutanol-para-turp-peanut [Concomitant]
     Indication: Excessive cerumen production
     Dosage: 220 DROP/11 ML DROPS (5 DRP OTIC (EAR) AT BEDTIME AS NEEDED FOR)
     Route: 048
  7. CHOLECALCIFEROL [Concomitant]
     Active Substance: CHOLECALCIFEROL
     Indication: Product used for unknown indication
     Dosage: 4 TAB ORAL EVERY MORNING
     Route: 048
  8. pramoxine-calamine [Concomitant]
     Indication: Product used for unknown indication
     Dosage: 1 APPLICATION TOPICAL AS DIRECTED AS NEEDED FOR: ITCHING
     Route: 061
  9. RISEDRONATE SODIUM [Concomitant]
     Active Substance: RISEDRONATE SODIUM
     Indication: Product used for unknown indication
     Dosage: 150 MG TABLET
     Route: 048
  10. CALCIUM CARBONATE [Concomitant]
     Active Substance: CALCIUM CARBONATE
     Indication: Product used for unknown indication
     Dosage: 600 MG CALCIUM / 500 MG ORAL EVERYDAY AT NOON
     Route: 048
  11. LACTULOSE [Concomitant]
     Active Substance: LACTULOSE
     Indication: Product used for unknown indication
     Dosage: 10 GRAM/15 ML SOLUTION / 60 ML ORAL TWICE DAILY
     Route: 048
  12. POLYETHYLENE GLYCOL [Concomitant]
     Active Substance: POLYETHYLENE GLYCOL
     Indication: Product used for unknown indication
     Dosage: 17 G ORAL THREE TIMES A DAY
     Route: 048
  13. ATIVAN [Concomitant]
     Active Substance: LORAZEPAM
     Indication: Product used for unknown indication
     Dosage: 0.5 MG ORAL AT BEDTIME
     Route: 065

REACTIONS (3)
  - Autism spectrum disorder [Unknown]
  - Dandy-Walker syndrome [Unknown]
  - Platelet count decreased [Unknown]
